FAERS Safety Report 8354258-7 (Version None)
Quarter: 2012Q2

REPORT INFORMATION
  Report Type: 
  Country: None (occurrence: None)
  Receive Date: 20120511
  Receipt Date: 20120507
  Transmission Date: 20120825
  Serious: Yes (Other)
  Sender: FDA-Public Use
  Company Number: US-PFIZER INC-2012086535

PATIENT
  Sex: Male

DRUGS (7)
  1. PREDNISONE [Concomitant]
     Dosage: UNK
     Dates: start: 20120214
  2. COLCRYS [Concomitant]
     Dosage: UNK
  3. CLARITIN [Concomitant]
     Dosage: EVERY 2 WEEKS
     Dates: start: 20120228
  4. SOLU-CORTEF [Suspect]
     Indication: PREMEDICATION
     Dosage: 250 MG, QOW
     Route: 042
     Dates: start: 20120228
  5. TYLENOL (CAPLET) [Concomitant]
     Dosage: EVERY 2 WEEKS
     Dates: start: 20120228
  6. VICODIN [Concomitant]
     Dosage: UNK
  7. NAPROXEN (ALEVE) [Concomitant]
     Dosage: UNK

REACTIONS (5)
  - ABDOMINAL PAIN UPPER [None]
  - HYPERHIDROSIS [None]
  - DRUG INEFFECTIVE [None]
  - INFUSION RELATED REACTION [None]
  - BLOOD PRESSURE INCREASED [None]
